FAERS Safety Report 6476660-0 (Version None)
Quarter: 2009Q4

REPORT INFORMATION
  Report Type: 
  Country: None (occurrence: None)
  Receive Date: 20091207
  Receipt Date: 20091202
  Transmission Date: 20100525
  Serious: Yes (Hospitalization, Other)
  Sender: FDA-Public Use
  Company Number: DK-WYE-G04642309

PATIENT
  Sex: Male
  Weight: 78 kg

DRUGS (1)
  1. REFACTO [Suspect]
     Indication: FACTOR VIII DEFICIENCY
     Dosage: 1000 IU EVERY
     Route: 042
     Dates: start: 20090916, end: 20090920

REACTIONS (1)
  - FACTOR VIII INHIBITION [None]
